FAERS Safety Report 16949231 (Version 5)
Quarter: 2022Q1

REPORT INFORMATION
  Report Type: Report from Study
  Country: US (occurrence: None)
  Receive Date: 20191023
  Receipt Date: 20220211
  Transmission Date: 20220424
  Serious: Yes (Hospitalization, Other)
  Sender: FDA-Public Use
  Company Number: US-ROCHE-2450482

PATIENT
  Age: 86 Year
  Sex: Female
  Weight: 54.3 kg

DRUGS (4)
  1. ATEZOLIZUMAB [Suspect]
     Active Substance: ATEZOLIZUMAB
     Indication: Bladder cancer
     Dosage: CYCLE = 21 DAYS (MAX=17 CYCLES). ON 29/MAY/2019, RECEIVED LAST DOSE OF IV ATEZOLIZUMAB.
     Route: 042
     Dates: start: 20190529, end: 20190529
  2. PULMICORT TURBUHALER [Concomitant]
     Active Substance: BUDESONIDE
  3. ALBUTEROL [Concomitant]
     Active Substance: ALBUTEROL
  4. ZITHROMAX [Concomitant]
     Active Substance: AZITHROMYCIN DIHYDRATE

REACTIONS (7)
  - Dyspnoea [Recovered/Resolved]
  - Hypertension [Unknown]
  - Hypoxia [Recovered/Resolved]
  - Chills [Recovered/Resolved]
  - Fatigue [Unknown]
  - Hyponatraemia [Unknown]
  - Chronic obstructive pulmonary disease [Recovered/Resolved with Sequelae]

NARRATIVE: CASE EVENT DATE: 20190530
